FAERS Safety Report 8518052-6 (Version None)
Quarter: 2012Q3

REPORT INFORMATION
  Report Type: 
  Country: None (occurrence: None)
  Receive Date: 20120718
  Receipt Date: 20110826
  Transmission Date: 20120928
  Serious: No
  Sender: FDA-Public Use
  Company Number: US-BRISTOL-MYERS SQUIBB COMPANY-16008336

PATIENT
  Sex: Male

DRUGS (1)
  1. COUMADIN [Suspect]

REACTIONS (2)
  - TONGUE HAEMORRHAGE [None]
  - HAEMOPTYSIS [None]
